FAERS Safety Report 6919288-8 (Version None)
Quarter: 2010Q3

REPORT INFORMATION
  Report Type: 
  Country: None (occurrence: None)
  Receive Date: 20100811
  Receipt Date: 20100804
  Transmission Date: 20110219
  Serious: Yes (Death, Hospitalization)
  Sender: FDA-Public Use
  Company Number: A0852455A

PATIENT
  Sex: Male
  Weight: 75 kg

DRUGS (3)
  1. COMBIVIR [Suspect]
     Route: 048
     Dates: start: 20000101
  2. AZT [Suspect]
     Route: 065
     Dates: start: 20000101
  3. UNSPECIFIED MEDICATIONS [Concomitant]

REACTIONS (8)
  - DISEASE PROGRESSION [None]
  - DISSEMINATED INTRAVASCULAR COAGULATION [None]
  - FUNGAL INFECTION [None]
  - MUSCLE ATROPHY [None]
  - NON-HODGKIN'S LYMPHOMA [None]
  - PNEUMONIA ASPIRATION [None]
  - UPPER GASTROINTESTINAL HAEMORRHAGE [None]
  - WEIGHT DECREASED [None]
